FAERS Safety Report 5528194-5 (Version None)
Quarter: 2007Q4

REPORT INFORMATION
  Report Type: 
  Country: None (occurrence: None)
  Receive Date: 20071121
  Receipt Date: 20071106
  Transmission Date: 20080405
  Serious: Yes (Life-Threatening, Hospitalization)
  Sender: FDA-Public Use
  Company Number: 163803ISR

PATIENT
  Age: 54 Year
  Sex: Female

DRUGS (3)
  1. NIFEDIPINE [Suspect]
     Dosage: 30 MG (30 MG, 1 IN 1 D), ORAL
     Route: 048
     Dates: start: 20071017, end: 20071017
  2. METOPROLOL SUCCINATE [Concomitant]
  3. LEVONORGESTREL AND ETHINYL ESTRADIOL [Concomitant]

REACTIONS (2)
  - CONVULSION [None]
  - LOSS OF CONSCIOUSNESS [None]
